FAERS Safety Report 12456366 (Version 10)
Quarter: 2018Q2

REPORT INFORMATION
  Report Type: Report from Study
  Country: AR (occurrence: AR)
  Receive Date: 20160610
  Receipt Date: 20180611
  Transmission Date: 20180711
  Serious: Yes (Hospitalization)
  Sender: FDA-Public Use
  Company Number: PHHO2016AR008172

PATIENT
  Age: 64 Year
  Sex: Female
  Weight: 80.5 kg

DRUGS (2)
  1. TRASTUZUMAB. [Suspect]
     Active Substance: TRASTUZUMAB
     Indication: BREAST CANCER METASTATIC
     Dosage: LOADING DOSE OF 8 MG/KG FOLLOWED BY THE MAINTENANCE DOSE OF 6 MG/KG IV Q3WEEKS
     Route: 042
     Dates: start: 20151113, end: 20160429
  2. TYKERB [Suspect]
     Active Substance: LAPATINIB DITOSYLATE
     Indication: BREAST CANCER METASTATIC
     Dosage: 1000 MG/KG, QD
     Route: 048
     Dates: start: 20151113, end: 20160520

REACTIONS (1)
  - Chronic obstructive pulmonary disease [Recovered/Resolved]

NARRATIVE: CASE EVENT DATE: 20160603
